FAERS Safety Report 8398154-8 (Version None)
Quarter: 2012Q2

REPORT INFORMATION
  Report Type: 
  Country: None (occurrence: None)
  Receive Date: 20120531
  Receipt Date: 20120526
  Transmission Date: 20120825
  Serious: Yes (Death, Life-Threatening, Hospitalization)
  Sender: FDA-Public Use
  Company Number: PHHO2012BR007308

PATIENT
  Sex: Male
  Weight: 98 kg

DRUGS (3)
  1. SIMULECT [Suspect]
     Indication: RENAL TRANSPLANT
     Dosage: 20 MG, QD
     Route: 042
     Dates: start: 20120420
  2. PREDNISONE TAB [Suspect]
     Indication: RENAL TRANSPLANT
  3. CERTICAN [Suspect]
     Indication: RENAL TRANSPLANT
     Dosage: 1.5 MG, BID
     Route: 048
     Dates: start: 20120421

REACTIONS (2)
  - SEPTIC SHOCK [None]
  - NECROTISING FASCIITIS [None]
